FAERS Safety Report 19229113 (Version 1)
Quarter: 2021Q2

REPORT INFORMATION
  Report Type: Spontaneous
  Country: US (occurrence: US)
  Receive Date: 20210506
  Receipt Date: 20210506
  Transmission Date: 20210717
  Serious: Yes (Other)
  Sender: FDA-Public Use
  Company Number: US-SUNOVION-2021SUN001676

PATIENT
  Age: 72 Year
  Sex: Female

DRUGS (1)
  1. LATUDA [Suspect]
     Active Substance: LURASIDONE HYDROCHLORIDE
     Dosage: 20 MG
     Route: 048
     Dates: start: 202010

REACTIONS (3)
  - Extrapyramidal disorder [Recovering/Resolving]
  - Dry mouth [Recovering/Resolving]
  - Cerebrovascular accident [Not Recovered/Not Resolved]
